FAERS Safety Report 7177722-5 (Version None)
Quarter: 2010Q4

REPORT INFORMATION
  Report Type: 
  Country: None (occurrence: None)
  Receive Date: 20101220
  Receipt Date: 20101117
  Transmission Date: 20110411
  Serious: Yes (Death)
  Sender: FDA-Public Use
  Company Number: US-PFIZER INC-US-WYE-H18296510

PATIENT
  Sex: Female

DRUGS (2)
  1. RAPAMUNE [Suspect]
     Indication: GLIONEURONAL TUMOUR
     Dosage: 1 MG, 5X PER 1 DAY
     Route: 048
  2. KEPPRA [Concomitant]
     Dosage: 800 MG (LIQUID), 2X/DAY
     Dates: start: 20060101, end: 20100101

REACTIONS (1)
  - BRAIN NEOPLASM [None]
